FAERS Safety Report 15127141 (Version 4)
Quarter: 2019Q2

REPORT INFORMATION
  Report Type: Report from Study
  Country: KR (occurrence: KR)
  Receive Date: 20180710
  Receipt Date: 20190516
  Transmission Date: 20190711
  Serious: Yes (Hospitalization)
  Sender: FDA-Public Use
  Company Number: KR-ASTRAZENECA-2018SE88056

PATIENT
  Age: 27575 Day
  Sex: Female

DRUGS (8)
  1. NIZATIDINE. [Concomitant]
     Active Substance: NIZATIDINE
     Indication: GASTRIC PH DECREASED
     Route: 048
  2. CLOPIDOGREL [Concomitant]
     Active Substance: CLOPIDOGREL BISULFATE
     Indication: HEAD TITUBATION
     Route: 048
  3. AZD6094 [Suspect]
     Active Substance: SAVOLITINIB
     Indication: NON-SMALL CELL LUNG CANCER
     Route: 048
     Dates: start: 20180620, end: 20180708
  4. AMLODIPINE [Concomitant]
     Active Substance: AMLODIPINE BESYLATE
     Indication: HYPERTENSION
     Route: 048
  5. K-CETIL [Concomitant]
     Indication: HEAD TITUBATION
     Route: 048
  6. TAGRISSO [Suspect]
     Active Substance: OSIMERTINIB
     Indication: NON-SMALL CELL LUNG CANCER
     Route: 048
     Dates: start: 20180620
  7. BEECOM [Concomitant]
     Indication: VITAMIN SUPPLEMENTATION
     Route: 048
  8. ITOMED [Concomitant]
     Indication: DYSPEPSIA
     Route: 048

REACTIONS (1)
  - Hypersensitivity [Recovered/Resolved]

NARRATIVE: CASE EVENT DATE: 20180701
